FAERS Safety Report 8300436-2 (Version None)
Quarter: 2012Q2

REPORT INFORMATION
  Report Type: 
  Country: None (occurrence: None)
  Receive Date: 20120420
  Receipt Date: 20120418
  Transmission Date: 20120825
  Serious: No
  Sender: FDA-Public Use
  Company Number: US-PFIZER INC-2010156074

PATIENT
  Sex: Male

DRUGS (7)
  1. SYMBICORT [Concomitant]
  2. ALBUTEROL [Concomitant]
  3. HYDROXYZINE HCL [Suspect]
     Dosage: 10 MG, 3X/DAY
  4. HYDROXYZINE HCL [Suspect]
     Dosage: 10 MG, 1X/DAY
  5. GUAIFENESIN [Concomitant]
  6. PREDNISONE [Concomitant]
     Dosage: 10 MG , ONCE DAILY
  7. CLARITIN [Concomitant]
     Indication: PRURITUS
     Dosage: UNK

REACTIONS (2)
  - SOMNOLENCE [None]
  - ASTHENIA [None]
